FAERS Safety Report 23992277 (Version 1)
Quarter: 2024Q2

REPORT INFORMATION
  Report Type: Spontaneous
  Country: US (occurrence: US)
  Receive Date: 20240620
  Receipt Date: 20240620
  Transmission Date: 20240716
  Serious: No
  Sender: FDA-Public Use
  Company Number: US-APOTEX-2024AP007230

PATIENT
  Age: 19 Year
  Sex: Female

DRUGS (1)
  1. TEMOZOLOMIDE [Suspect]
     Active Substance: TEMOZOLOMIDE
     Indication: Ewing^s sarcoma
     Dosage: UNK
     Route: 065

REACTIONS (1)
  - Headache [Unknown]
